FAERS Safety Report 22010257 (Version 1)
Quarter: 2023Q1

REPORT INFORMATION
  Report Type: Spontaneous
  Country: US (occurrence: US)
  Receive Date: 20230220
  Receipt Date: 20230220
  Transmission Date: 20230418
  Serious: Yes (Death, Other)
  Sender: FDA-Public Use
  Company Number: US-GLAXOSMITHKLINE-US2023AMR027265

PATIENT

DRUGS (1)
  1. BLENREP [Suspect]
     Active Substance: BELANTAMAB MAFODOTIN-BLMF
     Indication: Plasma cell myeloma refractory
     Dosage: 2.5 MG/KG (ONE DOSE/FIRST DOSE)
     Route: 042

REACTIONS (2)
  - Plasma cell myeloma refractory [Fatal]
  - Blindness [Unknown]
